FAERS Safety Report 13204761 (Version 1)
Quarter: 2017Q1

REPORT INFORMATION
  Report Type: Spontaneous
  Country: US (occurrence: US)
  Receive Date: 20170207
  Receipt Date: 20170207
  Transmission Date: 20170428
  Serious: No
  Sender: FDA-Public Use
  Company Number: None

PATIENT
  Age: 39 Year
  Sex: Female

DRUGS (1)
  1. STELARA [Suspect]
     Active Substance: USTEKINUMAB
     Indication: PSORIASIS
     Dosage: 45 MG AT WEEK 0, WEEK 4 THEN EVERY 12 SUBQ
     Route: 058
     Dates: start: 20161222, end: 20170207

REACTIONS (2)
  - Decreased activity [None]
  - Arthralgia [None]

NARRATIVE: CASE EVENT DATE: 20170123
